FAERS Safety Report 13670366 (Version 2)
Quarter: 2017Q2

REPORT INFORMATION
  Report Type: Spontaneous
  Country: US (occurrence: US)
  Receive Date: 20170620
  Receipt Date: 20170628
  Transmission Date: 20170830
  Serious: Yes (Hospitalization)
  Sender: FDA-Public Use
  Company Number: US-IMPAX LABORATORIES, INC-2017-IPXL-01752

PATIENT
  Age: 57 Year
  Sex: Male

DRUGS (3)
  1. MORPHINE SULFATE EXTENDED-RELEASE [Suspect]
     Active Substance: MORPHINE SULFATE
     Indication: BACK PAIN
     Dosage: 31.975 MG, DAILY
     Route: 037
  2. BACLOFEN. [Concomitant]
     Active Substance: BACLOFEN
     Dosage: 10 MG, EVERY 6HR
     Route: 048
  3. PARAMIDON [Concomitant]
     Indication: SEIZURE
     Dosage: 50 MG, EVERY 8HR
     Route: 048

REACTIONS (6)
  - Delusion [Recovered/Resolved]
  - Feeling guilty [Recovered/Resolved]
  - Drug withdrawal syndrome [Recovered/Resolved]
  - Thinking abnormal [Recovered/Resolved]
  - Paranoia [Recovered/Resolved]
  - Hallucinations, mixed [Recovered/Resolved]
